FAERS Safety Report 10144790 (Version 1)
Quarter: 2014Q2

REPORT INFORMATION
  Report Type: Spontaneous
  Country: US (occurrence: US)
  Receive Date: 20140430
  Receipt Date: 20140430
  Transmission Date: 20141212
  Serious: No
  Sender: FDA-Public Use
  Company Number: US-SA-2013SA136154

PATIENT
  Age: 55 Year
  Sex: Female

DRUGS (2)
  1. ENOXAPARIN SODIUM - WINTHROP [Suspect]
     Indication: THROMBOSIS PROPHYLAXIS
     Route: 065
     Dates: start: 20131219, end: 20131223
  2. ENOXAPARIN SODIUM - WINTHROP [Suspect]
     Indication: THROMBOSIS PROPHYLAXIS
     Route: 065
     Dates: start: 20131223

REACTIONS (7)
  - Fatigue [Not Recovered/Not Resolved]
  - Limb discomfort [Recovered/Resolved]
  - Weight decreased [Unknown]
  - Red blood cell count decreased [Unknown]
  - White blood cell count decreased [Unknown]
  - Haemorrhage [Recovered/Resolved]
  - Extra dose administered [Unknown]
